FAERS Safety Report 19854056 (Version 1)
Quarter: 2021Q3

REPORT INFORMATION
  Report Type: Spontaneous
  Country: US (occurrence: US)
  Receive Date: 20210920
  Receipt Date: 20210920
  Transmission Date: 20211014
  Serious: No
  Sender: FDA-Public Use
  Company Number: US-TARO-2020TAR01807

PATIENT

DRUGS (1)
  1. LORATADINE ORAL SOLUTION USP 5 MG/5 ML [Suspect]
     Active Substance: LORATADINE
     Indication: PRODUCT USED FOR UNKNOWN INDICATION
     Dosage: UNK
     Route: 048
     Dates: start: 20201121

REACTIONS (4)
  - Pharyngeal paraesthesia [Recovered/Resolved]
  - Hypoaesthesia oral [Recovered/Resolved]
  - Dysgeusia [Recovered/Resolved]
  - Feeling abnormal [Recovered/Resolved]

NARRATIVE: CASE EVENT DATE: 20201121
